FAERS Safety Report 13064197 (Version 2)
Quarter: 2018Q2

REPORT INFORMATION
  Report Type: Spontaneous
  Country: US (occurrence: US)
  Receive Date: 20161227
  Receipt Date: 20180420
  Transmission Date: 20180711
  Serious: Yes (Congenital Anomaly, Other)
  Sender: FDA-Public Use
  Company Number: PHEH2016US033665

PATIENT
  Sex: Male

DRUGS (2)
  1. ONDANSETRON HYDROCHLORIDE. [Suspect]
     Active Substance: ONDANSETRON HYDROCHLORIDE
     Indication: FOETAL EXPOSURE DURING PREGNANCY
     Dosage: MOTHER DOSE: 04 MG, Q6H
     Route: 064
  2. ZOFRAN [Suspect]
     Active Substance: ONDANSETRON HYDROCHLORIDE
     Indication: FOETAL EXPOSURE DURING PREGNANCY
     Route: 064

REACTIONS (7)
  - Ventricular septal defect [Unknown]
  - Anomalous pulmonary venous connection [Unknown]
  - Congenital anomaly [Unknown]
  - Atrial septal defect [Unknown]
  - Heart disease congenital [Unknown]
  - Injury [Unknown]
  - Foetal exposure during pregnancy [Unknown]
